FAERS Safety Report 9636469 (Version 1)
Quarter: 2013Q4

REPORT INFORMATION
  Report Type: Spontaneous
  Country: BR (occurrence: BR)
  Receive Date: 20131021
  Receipt Date: 20131021
  Transmission Date: 20140711
  Serious: Yes (Other)
  Sender: FDA-Public Use
  Company Number: BR-009507513-1310BRA007979

PATIENT
  Age: 7 Month
  Sex: 0

DRUGS (4)
  1. SINGULAIR [Suspect]
     Dosage: UNK, UNKNOWN
     Route: 048
     Dates: start: 2013, end: 2013
  2. AEROLIN SPRAY [Concomitant]
     Dosage: UNK
  3. FLIXOTIDE SPRAY [Concomitant]
     Dosage: UNK
  4. CLAVULIN [Concomitant]
     Dosage: UNK

REACTIONS (1)
  - Paralysis [Recovered/Resolved]
